FAERS Safety Report 15668144 (Version 1)
Quarter: 2018Q4

REPORT INFORMATION
  Report Type: Spontaneous
  Country: US (occurrence: US)
  Receive Date: 20181129
  Receipt Date: 20181129
  Transmission Date: 20190205
  Serious: No
  Sender: FDA-Public Use
  Company Number: US-TEVA-2018-US-974540

PATIENT
  Sex: Male

DRUGS (1)
  1. MUPIROCIN. [Suspect]
     Active Substance: MUPIROCIN
     Indication: STAPHYLOCOCCAL SKIN INFECTION
     Route: 045
     Dates: start: 20181030

REACTIONS (3)
  - Insomnia [Unknown]
  - Paraesthesia [Recovering/Resolving]
  - Formication [Recovering/Resolving]
